FAERS Safety Report 8135927-0 (Version None)
Quarter: 2012Q1

REPORT INFORMATION
  Report Type: 
  Country: None (occurrence: None)
  Receive Date: 20120214
  Receipt Date: 20120207
  Transmission Date: 20120608
  Serious: Yes (Hospitalization, Other)
  Sender: FDA-Public Use
  Company Number: JP-PFIZER INC-2011223243

PATIENT
  Age: 85 Year
  Sex: Female

DRUGS (12)
  1. LYRICA [Suspect]
     Indication: LUMBAR SPINAL STENOSIS
     Dosage: UNK
     Route: 048
     Dates: start: 20110601, end: 20110914
  2. LIVALO [Concomitant]
     Dosage: 1 TABLET/DAY
     Route: 048
     Dates: end: 20110913
  3. DEPAS [Concomitant]
     Dosage: UNK
  4. MICARDIS [Concomitant]
     Dosage: UNK
  5. LYRICA [Suspect]
     Indication: SPINAL COLUMN STENOSIS
     Dosage: 150 MG DAILY
     Route: 048
     Dates: start: 20110801, end: 20110913
  6. EBRANTIL [Concomitant]
     Dosage: UNK
  7. ROHYPNOL [Concomitant]
     Dosage: UNK
  8. AMLODIPINE [Concomitant]
     Dosage: UNK
  9. DIART [Concomitant]
     Dosage: UNK
  10. FAMOTIDINE [Concomitant]
     Dosage: UNK
  11. GASLON [Concomitant]
     Dosage: UNK
  12. LOXONIN [Concomitant]
     Dosage: UNK

REACTIONS (2)
  - RHABDOMYOLYSIS [None]
  - PNEUMONIA ASPIRATION [None]
